FAERS Safety Report 18303557 (Version 1)
Quarter: 2020Q3

REPORT INFORMATION
  Report Type: Spontaneous
  Country: BR (occurrence: BR)
  Receive Date: 20200924
  Receipt Date: 20200924
  Transmission Date: 20201103
  Serious: Yes (Hospitalization, Other)
  Sender: FDA-Public Use
  Company Number: BR-ACCORD-202115

PATIENT
  Age: 72 Year
  Sex: Female

DRUGS (3)
  1. FUROSEMIDE. [Suspect]
     Active Substance: FUROSEMIDE
     Indication: OLIGURIA
     Dosage: 40 MG / DAY (STARTED ON DAY 4)
     Route: 042
  2. METHYLPREDNISOLONE. [Suspect]
     Active Substance: METHYLPREDNISOLONE
     Indication: LARYNGOSPASM
     Dosage: STARTED ON DAY 4 AND RECEIVED HIGH DOSES OF METHYLPREDNISOLONE 75 MG 8/8H)
     Route: 042
  3. FUROSEMIDE. [Suspect]
     Active Substance: FUROSEMIDE
     Indication: PULMONARY CONGESTION
     Dosage: 40 MG / DAY (STARTED ON DAY 4)
     Route: 042

REACTIONS (10)
  - Renal impairment [Recovering/Resolving]
  - Fluid balance positive [Unknown]
  - Hypervolaemia [Unknown]
  - Polyuria [Recovering/Resolving]
  - Hypertension [Unknown]
  - Metabolic alkalosis [Unknown]
  - Blood urea increased [Recovering/Resolving]
  - Hypokalaemia [Unknown]
  - Condition aggravated [Recovering/Resolving]
  - Hypernatraemia [Recovering/Resolving]
